FAERS Safety Report 6532672-X (Version None)
Quarter: 2009Q4

REPORT INFORMATION
  Report Type: 
  Country: None (occurrence: None)
  Receive Date: 20091231
  Receipt Date: 20091201
  Transmission Date: 20100525
  Serious: Yes (Hospitalization, Other)
  Sender: FDA-Public Use
  Company Number: 09-016

PATIENT
  Age: 9 Year
  Sex: Male

DRUGS (2)
  1. (ANTIGEN TSTS) [Suspect]
     Indication: HYPERSENSITIVITY
     Dosage: SUBCUTANEOUS
     Route: 058
     Dates: start: 20091127
  2. SINGULAIR [Concomitant]

REACTIONS (1)
  - ANAPHYLACTIC REACTION [None]
